FAERS Safety Report 5143715-2 (Version None)
Quarter: 2006Q4

REPORT INFORMATION
  Report Type: 
  Country: None (occurrence: None)
  Receive Date: 20061103
  Receipt Date: 20061017
  Transmission Date: 20070319
  Serious: Yes (Hospitalization)
  Sender: FDA-Public Use
  Company Number: JP-MERCK-0610USA11475

PATIENT
  Age: 76 Year
  Sex: Female

DRUGS (6)
  1. FOSAMAX [Suspect]
     Indication: OSTEOPOROSIS
     Route: 048
     Dates: start: 20060618, end: 20060912
  2. ATELEC [Suspect]
     Indication: HYPERTENSION
     Route: 048
     Dates: start: 20030828, end: 20061020
  3. OMEPRAL [Suspect]
     Indication: REFLUX OESOPHAGITIS
     Route: 048
     Dates: start: 20050827, end: 20061020
  4. LOXONIN [Suspect]
     Indication: ARTHRALGIA
     Route: 048
     Dates: start: 20060520, end: 20060912
  5. MOBIC [Suspect]
     Indication: ARTHRALGIA
     Route: 048
     Dates: end: 20060520
  6. MOBIC [Suspect]
     Route: 048
     Dates: start: 20060913

REACTIONS (1)
  - EOSINOPHILIA [None]
